FAERS Safety Report 14119993 (Version 2)
Quarter: 2018Q1

REPORT INFORMATION
  Report Type: Spontaneous
  Country: US (occurrence: US)
  Receive Date: 20171024
  Receipt Date: 20180123
  Transmission Date: 20180508
  Serious: No
  Sender: FDA-Public Use
  Company Number: US-GLAXOSMITHKLINE-US2017160669

PATIENT
  Age: 57 Year
  Sex: Female

DRUGS (13)
  1. BENLYSTA [Suspect]
     Active Substance: BELIMUMAB
     Indication: SYSTEMIC LUPUS ERYTHEMATOSUS
     Dosage: UNK UNK, CYC
     Route: 041
     Dates: start: 201708
  2. FOLIC ACID. [Concomitant]
     Active Substance: FOLIC ACID
  3. PRILOSEC [Concomitant]
     Active Substance: OMEPRAZOLE MAGNESIUM
  4. RISPERIDONE. [Concomitant]
     Active Substance: RISPERIDONE
  5. ROPINIROLE TABLET [Concomitant]
     Active Substance: ROPINIROLE
  6. CLONAZEPAM. [Concomitant]
     Active Substance: CLONAZEPAM
  7. EVENING PRIMROSE OIL [Concomitant]
     Active Substance: EVENING PRIMROSE OIL\HERBALS
  8. KEPPRA [Concomitant]
     Active Substance: LEVETIRACETAM
  9. CELECOXIB. [Concomitant]
     Active Substance: CELECOXIB
  10. LEVETIRACETAM. [Concomitant]
     Active Substance: LEVETIRACETAM
  11. PREDNISONE. [Concomitant]
     Active Substance: PREDNISONE
  12. ASPIRIN. [Concomitant]
     Active Substance: ASPIRIN
  13. CELEBREX [Concomitant]
     Active Substance: CELECOXIB

REACTIONS (5)
  - Pain in extremity [Not Recovered/Not Resolved]
  - Muscle spasms [Recovered/Resolved]
  - Chest pain [Not Recovered/Not Resolved]
  - Nausea [Recovered/Resolved]
  - Insomnia [Recovered/Resolved]

NARRATIVE: CASE EVENT DATE: 201708
